FAERS Safety Report 24319276 (Version 3)
Quarter: 2024Q4

REPORT INFORMATION
  Report Type: Report from Study
  Country: NL (occurrence: NL)
  Receive Date: 20240914
  Receipt Date: 20241006
  Transmission Date: 20250114
  Serious: Yes (Other)
  Sender: ABBVIE
  Company Number: NL-ABBVIE-5921498

PATIENT
  Sex: Male

DRUGS (8)
  1. CARBIDOPA\LEVODOPA [Suspect]
     Active Substance: CARBIDOPA\LEVODOPA
     Indication: Parkinson^s disease
     Route: 050
     Dates: start: 20220510
  2. CARBIDOPA\LEVODOPA [Suspect]
     Active Substance: CARBIDOPA\LEVODOPA
     Dosage: MD:6.5ML; CD:3.5ML/H; ED:3.20ML??REMAINS AT 16 HOURS
     Route: 050
     Dates: start: 20240306, end: 20240829
  3. CARBIDOPA\LEVODOPA [Suspect]
     Active Substance: CARBIDOPA\LEVODOPA
     Dosage: MD:6.5ML; CD:3.6ML/H; ED:3.50ML?DURATION TEXT: REMAINS AT 16 HOURS
     Route: 050
     Dates: start: 20240829, end: 20240920
  4. CARBIDOPA\LEVODOPA [Suspect]
     Active Substance: CARBIDOPA\LEVODOPA
     Dosage: MD:6.5ML; CD:3.7ML/H; ED:3.50ML?DURATION TEXT: REMAINS AT 16 HOURS
     Route: 050
     Dates: start: 20240920, end: 20240926
  5. CARBIDOPA\LEVODOPA [Suspect]
     Active Substance: CARBIDOPA\LEVODOPA
     Dosage: MD:6.5ML; CD:3.8ML/H; ED:3.50ML?DURATION TEXT: REMAINS AT 16 HOURS
     Route: 050
     Dates: start: 20240926
  6. BENSERAZIDE\LEVODOPA [Concomitant]
     Active Substance: BENSERAZIDE\LEVODOPA
     Indication: Parkinson^s disease
     Dosage: FORM STRENGTH: 125 MILLIGRAM
  7. CARBIDOPA AND LEVODOPA [Concomitant]
     Active Substance: CARBIDOPA\LEVODOPA
     Indication: Parkinson^s disease
     Dosage: FORM STRENGTH: 125 MILLIGRAM
  8. BENSERAZIDE HYDROCHLORIDE\LEVODOPA [Concomitant]
     Active Substance: BENSERAZIDE HYDROCHLORIDE\LEVODOPA
     Indication: Parkinson^s disease
     Dosage: FORM STRENGTH: 125 MILLIGRAM
     Route: 048
     Dates: end: 20220510

REACTIONS (30)
  - Respiratory arrest [Not Recovered/Not Resolved]
  - On and off phenomenon [Recovering/Resolving]
  - Sluggishness [Not Recovered/Not Resolved]
  - Freezing phenomenon [Recovering/Resolving]
  - Hyperventilation [Not Recovered/Not Resolved]
  - Dysphagia [Recovering/Resolving]
  - Impaired quality of life [Unknown]
  - Choking [Not Recovered/Not Resolved]
  - Unevaluable event [Recovering/Resolving]
  - Gait disturbance [Recovering/Resolving]
  - Tinnitus [Not Recovered/Not Resolved]
  - Tremor [Not Recovered/Not Resolved]
  - Muscle rigidity [Recovering/Resolving]
  - Nocturia [Not Recovered/Not Resolved]
  - Asthenia [Recovering/Resolving]
  - Middle insomnia [Not Recovered/Not Resolved]
  - Brain stem glioma [Not Recovered/Not Resolved]
  - Stress [Not Recovered/Not Resolved]
  - Therapeutic product effect incomplete [Not Recovered/Not Resolved]
  - Unadjusted dose administered [Recovered/Resolved]
  - Bradykinesia [Recovering/Resolving]
  - Unevaluable event [Unknown]
  - Weight decreased [Not Recovered/Not Resolved]
  - Dizziness [Not Recovered/Not Resolved]
  - Anxiety [Unknown]
  - Dyskinesia [Recovering/Resolving]
  - Feeding disorder [Unknown]
  - Device leakage [Unknown]
  - Fluid intake reduced [Unknown]
  - Product communication issue [Recovered/Resolved]

NARRATIVE: CASE EVENT DATE: 20240801
